FAERS Safety Report 6280660-3 (Version None)
Quarter: 2009Q3

REPORT INFORMATION
  Report Type: 
  Country: None (occurrence: None)
  Receive Date: 20090724
  Receipt Date: 20081110
  Transmission Date: 20100115
  Serious: Yes (Other)
  Sender: FDA-Public Use
  Company Number: A0755785A

PATIENT
  Age: 69 Year
  Sex: Female

DRUGS (8)
  1. AVANDIA [Suspect]
     Dosage: 4MG TWICE PER DAY
     Route: 048
     Dates: start: 20050101, end: 20081105
  2. METFORMIN HCL [Concomitant]
  3. HYDROCHLOROTHIAZIDE [Concomitant]
  4. PRAVASTATIN [Concomitant]
  5. GLIPIZIDE [Concomitant]
  6. CARVEDILOL [Concomitant]
  7. VITAMIN B-12 [Concomitant]
  8. ASPIRIN [Concomitant]

REACTIONS (1)
  - ANAEMIA [None]
